FAERS Safety Report 14026395 (Version 1)
Quarter: 2017Q3

REPORT INFORMATION
  Report Type: Spontaneous
  Country: AT (occurrence: AT)
  Receive Date: 20170929
  Receipt Date: 20170929
  Transmission Date: 20171128
  Serious: Yes (Other)
  Sender: FDA-Public Use
  Company Number: AT-009507513-1709AUT010861

PATIENT
  Age: 56 Year
  Sex: Male

DRUGS (3)
  1. SIMVASTATIN. [Suspect]
     Active Substance: SIMVASTATIN
     Dosage: UNK
  2. SIMVASTATIN. [Suspect]
     Active Substance: SIMVASTATIN
     Dosage: 20 MG, HS
     Route: 048
     Dates: start: 2014
  3. THROMBO ASS [Concomitant]
     Active Substance: ASPIRIN
     Dosage: 1X1

REACTIONS (3)
  - Cardiac arrest [Unknown]
  - Coronary artery disease [Unknown]
  - Angina pectoris [Unknown]

NARRATIVE: CASE EVENT DATE: 2015
